APPROVED DRUG PRODUCT: CICLOPIROX
Active Ingredient: CICLOPIROX
Strength: 0.77%
Dosage Form/Route: CREAM;TOPICAL
Application: A077364 | Product #001 | TE Code: AB
Applicant: PADAGIS ISRAEL PHARMACEUTICALS LTD
Approved: Mar 3, 2006 | RLD: No | RS: No | Type: RX